FAERS Safety Report 17308939 (Version 2)
Quarter: 2020Q1

REPORT INFORMATION
  Report Type: Spontaneous
  Country: SG (occurrence: SG)
  Receive Date: 20200123
  Receipt Date: 20200228
  Transmission Date: 20200409
  Serious: Yes (Other)
  Sender: FDA-Public Use
  Company Number: SG-REGENERON PHARMACEUTICALS, INC.-2020-14365

PATIENT

DRUGS (1)
  1. EYLEA [Suspect]
     Active Substance: AFLIBERCEPT
     Indication: PRODUCT USED FOR UNKNOWN INDICATION
     Dosage: EYLEA 4 MONTHLY DOSING + 4 4-6 WEEKLY DOSING + 1 6 WEEKLY DOSING.

REACTIONS (2)
  - Eye haemorrhage [Unknown]
  - Detachment of retinal pigment epithelium [Unknown]
